FAERS Safety Report 5108351-2 (Version None)
Quarter: 2006Q3

REPORT INFORMATION
  Report Type: 
  Country: None (occurrence: None)
  Receive Date: 20060915
  Receipt Date: 20060905
  Transmission Date: 20061208
  Serious: Yes (Hospitalization, Other)
  Sender: FDA-Public Use
  Company Number: 2006086870

PATIENT
  Age: 63 Year
  Sex: Male

DRUGS (13)
  1. CORTEF [Suspect]
     Indication: HYPOPITUITARISM
     Dosage: 30 MG (2 IN 1 D), ORAL
     Route: 048
     Dates: start: 20060101
  2. CORTEF [Suspect]
     Indication: PITUITARY TUMOUR
     Dosage: 30 MG (2 IN 1 D), ORAL
     Route: 048
     Dates: start: 20060101
  3. VANCOMYCIN [Suspect]
     Indication: MENINGITIS BACTERIAL
     Dates: start: 20060301
  4. ALL OTHER THERAPEUTIC PRODUCTS ALL OTHER THERAPEUTIC PRODUCTS [Suspect]
     Indication: MENINGITIS BACTERIAL
     Dates: start: 20060401
  5. LEVOTHYROXINE SODIUM [Suspect]
     Indication: HYPOTHYROIDISM
     Dates: start: 20060301
  6. SYNTHROID [Concomitant]
  7. TAMSULOSIN HYDROCHLORIDE (TAMSULOSIN HYDROCHLORIDE) [Concomitant]
  8. MAGNESIUM (MAGNESIUM) [Concomitant]
  9. ALL OTHER THERAPEUTIC PRODUCTS (ALL OTHER THERAPEUTIC  PRODUCTS) [Concomitant]
  10. VITAMIN E [Concomitant]
  11. NEXIUM [Concomitant]
  12. IBUPROFEN [Concomitant]
  13. LEVOTHYROXINE SODIUM [Concomitant]

REACTIONS (9)
  - ABDOMINAL PAIN UPPER [None]
  - ADRENOCORTICAL INSUFFICIENCY ACUTE [None]
  - AMNESIA [None]
  - BLINDNESS [None]
  - DRUG INEFFECTIVE [None]
  - HYPOTHYROIDISM [None]
  - LOSS OF CONSCIOUSNESS [None]
  - MENINGITIS BACTERIAL [None]
  - WEIGHT DECREASED [None]
